FAERS Safety Report 9998041 (Version 1)
Quarter: 2014Q1

REPORT INFORMATION
  Report Type: Spontaneous
  Country: US (occurrence: None)
  Receive Date: 20140224
  Receipt Date: 20140224
  Transmission Date: 20141002
  Serious: Yes (Other)
  Sender: FDA-Public Use
  Company Number: PHEH2013US008392

PATIENT
  Age: 17 Year
  Sex: Female

DRUGS (1)
  1. TOBI [Suspect]
     Dosage: UNK

REACTIONS (1)
  - Lung disorder [None]
